FAERS Safety Report 17091944 (Version 4)
Quarter: 2021Q1

REPORT INFORMATION
  Report Type: Report from Study
  Country: EG (occurrence: EG)
  Receive Date: 20191129
  Receipt Date: 20210325
  Transmission Date: 20210419
  Serious: Yes (Other)
  Sender: FDA-Public Use
  Company Number: EG-BAYER-2019-185573

PATIENT
  Age: 25 Year
  Sex: Female
  Weight: 65 kg

DRUGS (10)
  1. INFEX [CLARITHROMYCIN] [Concomitant]
     Indication: ASTHENIA
     Dosage: 2 DF, QD
     Dates: start: 20190904, end: 20191115
  2. FLAMOGEN [Concomitant]
     Dosage: 4 DF, QD
     Dates: start: 20190904, end: 20191115
  3. BETAFERON [Suspect]
     Active Substance: INTERFERON BETA-1B
     Indication: MULTIPLE SCLEROSIS
     Dosage: 0.25 ML, QOD
     Route: 058
  4. BETAFERON [Suspect]
     Active Substance: INTERFERON BETA-1B
     Indication: MULTIPLE SCLEROSIS
     Dosage: 1 ML, QOD
     Route: 058
     Dates: start: 20190904
  5. BETAFERON [Suspect]
     Active Substance: INTERFERON BETA-1B
     Indication: MULTIPLE SCLEROSIS
     Dosage: 1 ML, QOD
     Route: 058
     Dates: start: 20190807
  6. THIOTACID [Concomitant]
     Active Substance: .ALPHA.-LIPOIC ACID
     Dosage: UNK, PRN
     Dates: start: 20190904, end: 20191115
  7. VIT D [ERGOCALCIFEROL] [Concomitant]
     Active Substance: ERGOCALCIFEROL
     Dosage: 1 DF, Q1MON
     Dates: start: 201909
  8. NEUROVIT [CYANOCOBALAMIN;IBUPROFEN;PYRIDOXINE HYDROCHLORIDE;THIAMI [Concomitant]
     Dosage: DAY AFTER DAY
     Dates: start: 201910
  9. LASILACTONE [Concomitant]
     Active Substance: FUROSEMIDE\SPIRONOLACTONE
     Dosage: UNK
     Dates: start: 20191115, end: 201911
  10. DIMERAN [Concomitant]
     Indication: BACK PAIN
     Dosage: UNK
     Dates: start: 20190904, end: 20191115

REACTIONS (39)
  - Crying [Not Recovered/Not Resolved]
  - Dizziness [Recovered/Resolved]
  - Disturbance in attention [None]
  - Gait disturbance [Recovered/Resolved]
  - Headache [Recovering/Resolving]
  - Hypoaesthesia [Recovering/Resolving]
  - Joint stiffness [Recovering/Resolving]
  - Band sensation [Recovered/Resolved]
  - Pyrexia [Recovered/Resolved]
  - Limb discomfort [Not Recovered/Not Resolved]
  - Abdominal pain lower [Recovered/Resolved]
  - Influenza [Not Recovered/Not Resolved]
  - Feeling abnormal [Recovered/Resolved]
  - Pyrexia [Not Recovered/Not Resolved]
  - Injection site bruising [Not Recovered/Not Resolved]
  - Pruritus allergic [Not Recovered/Not Resolved]
  - Injection site swelling [Recovering/Resolving]
  - Injection site bruising [None]
  - Injection site pain [Not Recovered/Not Resolved]
  - Musculoskeletal disorder [Not Recovered/Not Resolved]
  - Gastrooesophageal reflux disease [Unknown]
  - Injection site pain [Recovering/Resolving]
  - Nausea [Recovered/Resolved]
  - Injection site pain [Recovered/Resolved]
  - Injection site swelling [Not Recovered/Not Resolved]
  - Injection site bruising [Recovered/Resolved]
  - Injection site haemorrhage [Recovered/Resolved]
  - Pyrexia [Recovering/Resolving]
  - Dizziness [Recovered/Resolved]
  - Injection site swelling [None]
  - Incorrect dose administered [Recovered/Resolved]
  - Injection site haemorrhage [Recovering/Resolving]
  - Headache [Recovered/Resolved]
  - Depression [Not Recovered/Not Resolved]
  - Incorrect dose administered [Not Recovered/Not Resolved]
  - Angina pectoris [Not Recovered/Not Resolved]
  - Dyskinesia [Recovered/Resolved]
  - Injection site pain [Not Recovered/Not Resolved]
  - Dyspnoea [Not Recovered/Not Resolved]

NARRATIVE: CASE EVENT DATE: 201908
